FAERS Safety Report 13385210 (Version 1)
Quarter: 2017Q1

REPORT INFORMATION
  Report Type: Spontaneous
  Country: US (occurrence: US)
  Receive Date: 20170329
  Receipt Date: 20170329
  Transmission Date: 20170429
  Serious: Yes (Other)
  Sender: FDA-Public Use
  Company Number: US-ASTRAZENECA-2017SE31634

PATIENT
  Age: 21334 Day
  Sex: Female
  Weight: 67.6 kg

DRUGS (4)
  1. PRILOSEC [Suspect]
     Active Substance: OMEPRAZOLE MAGNESIUM
     Indication: GAUCHER^S DISEASE TYPE I
     Dosage: 20.0MG UNKNOWN
     Route: 048
  2. CLARITIN [Concomitant]
     Active Substance: LORATADINE
     Dosage: 10.0MG UNKNOWN
     Route: 048
  3. VALIUM [Concomitant]
     Active Substance: DIAZEPAM
     Route: 048
  4. VALIUM [Concomitant]
     Active Substance: DIAZEPAM
     Route: 048

REACTIONS (2)
  - Abdominal pain upper [Unknown]
  - Flushing [Unknown]

NARRATIVE: CASE EVENT DATE: 20170118
